FAERS Safety Report 6640457-9 (Version None)
Quarter: 2010Q1

REPORT INFORMATION
  Report Type: 
  Country: None (occurrence: None)
  Receive Date: 20100318
  Receipt Date: 20100309
  Transmission Date: 20100710
  Serious: Yes (Other)
  Sender: FDA-Public Use
  Company Number: CA-PFIZER INC-2010013786

PATIENT
  Age: 25 Year
  Sex: Female
  Weight: 61.224 kg

DRUGS (5)
  1. DETROL LA [Suspect]
     Indication: HYPERTONIC BLADDER
     Dosage: 4 MG, 1X/DAY
     Route: 048
     Dates: start: 20090901, end: 20090901
  2. DETROL LA [Suspect]
     Indication: CYSTITIS INTERSTITIAL
  3. PROPRANOLOL [Concomitant]
     Indication: ANXIETY
     Dosage: 20 MG, 2X/DAY
     Route: 048
     Dates: start: 20080101
  4. PROPRANOLOL [Concomitant]
     Dosage: 2X20 MG, 2X/DAY
     Route: 048
  5. SERTRALINE HYDROCHLORIDE [Concomitant]
     Indication: ANXIETY
     Dosage: 100 MG, 1X/DAY
     Route: 048
     Dates: start: 20080101

REACTIONS (1)
  - URINARY RETENTION [None]
